FAERS Safety Report 12673374 (Version 2)
Quarter: 2016Q3

REPORT INFORMATION
  Report Type: Spontaneous
  Country: FR (occurrence: FR)
  Receive Date: 20160822
  Receipt Date: 20160919
  Transmission Date: 20161109
  Serious: Yes (Hospitalization)
  Sender: FDA-Public Use
  Company Number: FR-SA-2016SA149374

PATIENT
  Age: 40 Year
  Sex: Female

DRUGS (10)
  1. RIMIFON [Suspect]
     Active Substance: ISONIAZID
     Indication: TUBERCULOSIS
     Route: 048
     Dates: start: 20160625, end: 20160720
  2. ETHAMBUTOL HYDROCHLORIDE. [Suspect]
     Active Substance: ETHAMBUTOL HYDROCHLORIDE
     Indication: TUBERCULOSIS
     Route: 048
     Dates: start: 20160625
  3. LEVOTHYROXINE. [Concomitant]
     Active Substance: LEVOTHYROXINE
     Dates: start: 201605
  4. CACIT D3 [Concomitant]
     Active Substance: CALCIUM\CHOLECALCIFEROL
  5. RHINADVIL [Suspect]
     Active Substance: IBUPROFEN\PSEUDOEPHEDRINE HYDROCHLORIDE
     Indication: NASOPHARYNGITIS
     Route: 048
     Dates: start: 20160712, end: 20160716
  6. PIRILENE [Suspect]
     Active Substance: PYRAZINAMIDE
     Indication: TUBERCULOSIS
     Route: 048
     Dates: start: 20160625, end: 20160720
  7. RIFADINE [Suspect]
     Active Substance: RIFAMPIN
     Indication: TUBERCULOSIS
     Route: 048
     Dates: start: 20160625
  8. PARACETAMOL [Suspect]
     Active Substance: ACETAMINOPHEN
     Dosage: DOSE AND DAILY DOSE- 3-4 G
     Route: 048
     Dates: start: 20160712, end: 20160719
  9. INEXIUM [Concomitant]
     Active Substance: ESOMEPRAZOLE
  10. GAVISCON [Concomitant]
     Active Substance: ALUMINUM HYDROXIDE\MAGNESIUM CARBONATE

REACTIONS (5)
  - Hepatocellular injury [Recovering/Resolving]
  - Alanine aminotransferase increased [Recovering/Resolving]
  - Prothrombin time shortened [Not Recovered/Not Resolved]
  - Gamma-glutamyltransferase increased [Recovering/Resolving]
  - Aspartate aminotransferase increased [Recovering/Resolving]

NARRATIVE: CASE EVENT DATE: 20160720
